FAERS Safety Report 25063537 (Version 3)
Quarter: 2025Q3

REPORT INFORMATION
  Report Type: Report from Study
  Country: IN (occurrence: IN)
  Receive Date: 20250311
  Receipt Date: 20250828
  Transmission Date: 20251021
  Serious: Yes (Hospitalization)
  Sender: ROCHE
  Company Number: IN-ROCHE-10000222491

PATIENT
  Age: 78 Year
  Sex: Male
  Weight: 54 kg

DRUGS (1)
  1. TECENTRIQ [Suspect]
     Active Substance: ATEZOLIZUMAB
     Indication: Hepatocellular carcinoma
     Route: 042

REACTIONS (13)
  - Jaundice [Recovered/Resolved]
  - Enteritis [Recovered/Resolved]
  - Nephritis [Recovered/Resolved]
  - Prostatomegaly [Recovered/Resolved]
  - Vomiting [Recovered/Resolved]
  - Gastrointestinal disorder [Recovered/Resolved]
  - Pyrexia [Recovered/Resolved]
  - Asthenia [Recovering/Resolving]
  - Weight decreased [Recovering/Resolving]
  - Gait disturbance [Recovering/Resolving]
  - Sleep disorder [Recovering/Resolving]
  - Pruritus [Not Recovered/Not Resolved]
  - Gastrointestinal disorder [Not Recovered/Not Resolved]

NARRATIVE: CASE EVENT DATE: 20250215
